FAERS Safety Report 9155071 (Version 1)
Quarter: 2013Q1

REPORT INFORMATION
  Report Type: Spontaneous
  Country: US (occurrence: US)
  Receive Date: 20130311
  Receipt Date: 20130311
  Transmission Date: 20140127
  Serious: Yes (Other)
  Sender: FDA-Public Use
  Company Number: US-ROCHE-1200157

PATIENT
  Age: 63 Year
  Sex: Male

DRUGS (5)
  1. AVASTIN [Suspect]
     Indication: DIABETIC RETINAL OEDEMA
     Route: 031
  2. AVASTIN [Suspect]
     Indication: OFF LABEL USE
  3. ASPIRIN [Concomitant]
     Route: 048
  4. COREG [Concomitant]
  5. DIOVAN [Concomitant]

REACTIONS (4)
  - Myocardial infarction [Unknown]
  - Oedema [Unknown]
  - Vitreous floaters [Unknown]
  - Metamorphopsia [Not Recovered/Not Resolved]
